FAERS Safety Report 8179239-8 (Version None)
Quarter: 2012Q1

REPORT INFORMATION
  Report Type: 
  Country: None (occurrence: None)
  Receive Date: 20120227
  Receipt Date: 20120217
  Transmission Date: 20120608
  Serious: Yes (Hospitalization)
  Sender: FDA-Public Use
  Company Number: AUR-APL-2012-01029

PATIENT
  Age: 65 Year
  Sex: Male

DRUGS (7)
  1. RAMIPRIL [Suspect]
     Indication: PRODUCT USED FOR UNKNOWN INDICATION
     Dosage: 2.5 MG (2.5 MG, 1 IN 1 D), ORAL
     Route: 048
     Dates: end: 20120131
  2. ABIRATERONE (ABIRATERONE) [Suspect]
     Indication: PROSTATE CANCER METASTATIC
     Dosage: (1 GM), ORAL
     Route: 048
     Dates: start: 20120116
  3. METOCLOPRAMIDE [Concomitant]
  4. OXYCODONE HCL [Concomitant]
  5. GOSERELIN (GOSERELIN) [Concomitant]
  6. LANSOPRAZOLE [Concomitant]
  7. BENDROFLUMETHIAZIDE (BENDROFLUMETHIAZIDE) [Suspect]
     Indication: PRODUCT USED FOR UNKNOWN INDICATION
     Dosage: 5 MG (5 MG, 1 IN 1 D), UNKNOWN
     Dates: end: 20120131

REACTIONS (6)
  - HEART RATE IRREGULAR [None]
  - RENAL FAILURE [None]
  - HEART RATE INCREASED [None]
  - SEPSIS [None]
  - DYSPNOEA [None]
  - LOWER RESPIRATORY TRACT INFECTION [None]
